FAERS Safety Report 16435334 (Version 1)
Quarter: 2019Q2

REPORT INFORMATION
  Report Type: Spontaneous
  Country: GR (occurrence: GR)
  Receive Date: 20190614
  Receipt Date: 20190614
  Transmission Date: 20190711
  Serious: Yes (Death, Other)
  Sender: FDA-Public Use
  Company Number: GR-OTSUKA-2019_022646

PATIENT
  Sex: Male

DRUGS (1)
  1. DACOGEN [Suspect]
     Active Substance: DECITABINE
     Indication: MYELOID LEUKAEMIA
     Dosage: 20 MG/M2
     Route: 042

REACTIONS (2)
  - Death [Fatal]
  - Splenic rupture [Unknown]
